FAERS Safety Report 8007572-9 (Version None)
Quarter: 2011Q4

REPORT INFORMATION
  Report Type: 
  Country: None (occurrence: None)
  Receive Date: 20111227
  Receipt Date: 20111216
  Transmission Date: 20120403
  Serious: Yes (Hospitalization)
  Sender: FDA-Public Use
  Company Number: DE-BAYER-2011-115257

PATIENT
  Age: 46 Year
  Sex: Female
  Weight: 69 kg

DRUGS (1)
  1. MIRENA [Suspect]
     Indication: CONTRACEPTION
     Dosage: 20 MCG/24HR, CONT
     Route: 015
     Dates: start: 20060223, end: 20100620

REACTIONS (2)
  - INTRADUCTAL PAPILLOMA OF BREAST [None]
  - BREAST CANCER IN SITU [None]
